FAERS Safety Report 8588595-8 (Version None)
Quarter: 2012Q3

REPORT INFORMATION
  Report Type: 
  Country: None (occurrence: None)
  Receive Date: 20120813
  Receipt Date: 20120802
  Transmission Date: 20120928
  Serious: Yes (Hospitalization, Other)
  Sender: FDA-Public Use
  Company Number: US-JNJFOC-20120403903

PATIENT
  Sex: Female

DRUGS (7)
  1. MEDROL [Suspect]
     Indication: BRONCHITIS
     Route: 065
  2. AZITHROMYCIN [Concomitant]
     Route: 065
     Dates: start: 20060101, end: 20090101
  3. ADVAIR DISKUS 100/50 [Suspect]
     Indication: ASTHMA
     Route: 065
  4. ADVAIR DISKUS 100/50 [Suspect]
     Indication: CHRONIC OBSTRUCTIVE PULMONARY DISEASE
     Route: 065
  5. CIPROFLOXACIN [Suspect]
     Indication: BRONCHITIS
     Route: 065
  6. AZITHROMYCIN [Concomitant]
     Indication: INFECTION
     Route: 065
     Dates: start: 20060101, end: 20090101
  7. LEVAQUIN [Suspect]
     Indication: RESPIRATORY TRACT INFECTION
     Route: 048
     Dates: start: 20090901, end: 20091001

REACTIONS (4)
  - MYOCARDIAL INFARCTION [None]
  - TENDON RUPTURE [None]
  - TENDONITIS [None]
  - ROTATOR CUFF SYNDROME [None]
